FAERS Safety Report 6728356-5 (Version None)
Quarter: 2010Q2

REPORT INFORMATION
  Report Type: 
  Country: None (occurrence: None)
  Receive Date: 20100512
  Receipt Date: 20100504
  Transmission Date: 20101027
  Serious: Yes (Life-Threatening, Hospitalization)
  Sender: FDA-Public Use
  Company Number: 8033673

PATIENT
  Sex: Male
  Weight: 103.1 kg

DRUGS (5)
  1. CERTOLIZUMAB PEGOL [Suspect]
     Indication: CROHN'S DISEASE
     Dosage: 400 MG, ONCE MONTHLY SUBCUTANEOUS
     Route: 058
     Dates: start: 20071220, end: 20080513
  2. TYLENOL PM [Concomitant]
  3. ALPRAZOLAM [Concomitant]
  4. OXYCODONE HCL AND ACETAMINOPHEN [Concomitant]
  5. XANAX [Concomitant]

REACTIONS (37)
  - ABDOMINAL PAIN [None]
  - ABDOMINAL WALL ABSCESS [None]
  - ACUTE PRERENAL FAILURE [None]
  - ALANINE AMINOTRANSFERASE INCREASED [None]
  - ANASTOMOTIC LEAK [None]
  - ATELECTASIS [None]
  - BACTERIAL INFECTION [None]
  - BLOOD ALBUMIN INCREASED [None]
  - BLOOD CALCIUM DECREASED [None]
  - BLOOD GLUCOSE INCREASED [None]
  - BLOOD POTASSIUM DECREASED [None]
  - COLITIS [None]
  - DECREASED APPETITE [None]
  - DEHYDRATION [None]
  - EXTRAVASATION [None]
  - FAILURE TO THRIVE [None]
  - HAEMATOCRIT DECREASED [None]
  - HAEMOGLOBIN DECREASED [None]
  - HYPOTENSION [None]
  - HYPOVOLAEMIA [None]
  - LARGE INTESTINAL ULCER [None]
  - MEAN PLATELET VOLUME DECREASED [None]
  - NAUSEA [None]
  - PLEURAL EFFUSION [None]
  - PLEURAL FIBROSIS [None]
  - PNEUMONIA [None]
  - PNEUMOPERITONEUM [None]
  - PROTEIN TOTAL DECREASED [None]
  - PROTHROMBIN TIME PROLONGED [None]
  - PSEUDOPOLYPOSIS [None]
  - RED BLOOD CELL COUNT DECREASED [None]
  - RENAL FAILURE [None]
  - RENAL FAILURE ACUTE [None]
  - RESPIRATORY FAILURE [None]
  - SEPSIS [None]
  - SEROSITIS [None]
  - VOMITING [None]
